FAERS Safety Report 6327742-5 (Version None)
Quarter: 2009Q3

REPORT INFORMATION
  Report Type: 
  Country: None (occurrence: None)
  Receive Date: 20090824
  Receipt Date: 20090501
  Transmission Date: 20100115
  Serious: Yes (Disabling)
  Sender: FDA-Public Use
  Company Number: APP200900522

PATIENT
  Age: 49 Year
  Sex: Female

DRUGS (5)
  1. SENSORCAINE [Suspect]
     Indication: MUSCULOSKELETAL PAIN
     Dosage: 300 ML, WITH NORMAL SALINE AND EPINEPHRINE, INTRA-ARTICULAR
     Route: 014
     Dates: start: 20060428
  2. ZIMMER PAIN PUMP [Suspect]
     Indication: MUSCULOSKELETAL PAIN
     Dates: start: 20060428
  3. ESTRADIOL [Suspect]
     Indication: DRUG USE FOR UNKNOWN INDICATION
     Dosage: 0.25 MG, 1 IN 1 D
  4. SYNTHROID [Concomitant]
  5. MARCAINE [Concomitant]

REACTIONS (2)
  - CHONDROLYSIS [None]
  - MUSCULOSKELETAL PAIN [None]
